FAERS Safety Report 23271582 (Version 1)
Quarter: 2023Q4

REPORT INFORMATION
  Report Type: Spontaneous
  Country: GB (occurrence: GB)
  Receive Date: 20231207
  Receipt Date: 20231207
  Transmission Date: 20240110
  Serious: Yes (Hospitalization, Other)
  Sender: FDA-Public Use
  Company Number: None

PATIENT
  Sex: Female
  Weight: 63 kg

DRUGS (1)
  1. KYLEENA [Suspect]
     Active Substance: LEVONORGESTREL
     Indication: Endometritis
     Dosage: 17.5?G/DAY
     Route: 015
     Dates: start: 20230627

REACTIONS (4)
  - Epistaxis [Not Recovered/Not Resolved]
  - Acne [None]
  - Alopecia [None]
  - Hair growth abnormal [None]

NARRATIVE: CASE EVENT DATE: 20231101
